FAERS Safety Report 8004513-5 (Version None)
Quarter: 2011Q4

REPORT INFORMATION
  Report Type: 
  Country: None (occurrence: None)
  Receive Date: 20111221
  Receipt Date: 20111221
  Transmission Date: 20120403
  Serious: Yes (Hospitalization)
  Sender: FDA-Public Use
  Company Number: None

PATIENT
  Age: 81 Year
  Sex: Female
  Weight: 95.5 kg

DRUGS (7)
  1. PRADAXA [Suspect]
     Indication: ATRIAL FIBRILLATION
     Dosage: 150MG BID PO CHRONIC
     Route: 048
  2. OMEPRAZOLE [Concomitant]
  3. DIPHENHYDRAMINE HCL [Concomitant]
  4. LEVOTHYROXINE SODIUM [Concomitant]
  5. CALTRATE + D [Concomitant]
  6. METOPROLOL SUCCINATE [Concomitant]
  7. K GLUCONATE [Concomitant]

REACTIONS (4)
  - GASTROINTESTINAL HAEMORRHAGE [None]
  - HYPERTENSION [None]
  - RENAL FAILURE ACUTE [None]
  - TACHYCARDIA [None]
